FAERS Safety Report 4942997-7 (Version None)
Quarter: 2006Q1

REPORT INFORMATION
  Report Type: 
  Country: None (occurrence: None)
  Receive Date: 20060314
  Receipt Date: 20051110
  Transmission Date: 20060701
  Serious: Yes (Life-Threatening)
  Sender: FDA-Public Use
  Company Number: FR-GLAXOSMITHKLINE-B0400755A

PATIENT
  Age: 7 Year
  Sex: Male
  Weight: 32 kg

DRUGS (3)
  1. VENTOLIN [Suspect]
     Indication: ASTHMA
     Dosage: 2PUFF TWICE PER DAY
     Route: 055
     Dates: end: 20051025
  2. BECOTIDE [Suspect]
     Indication: ASTHMA
     Dosage: 4PUFF PER DAY
     Route: 055
     Dates: end: 20051025
  3. PRIORIX [Concomitant]
     Indication: PROPHYLAXIS
     Route: 058
     Dates: start: 20050903, end: 20050903

REACTIONS (11)
  - ASTHENIA [None]
  - BRONCHITIS [None]
  - COUGH [None]
  - DERMATITIS BULLOUS [None]
  - DYSPNOEA [None]
  - ERYTHEMA [None]
  - PYREXIA [None]
  - RESPIRATORY DISORDER [None]
  - SKIN DISORDER [None]
  - SPUTUM PURULENT [None]
  - STEVENS-JOHNSON SYNDROME [None]
